FAERS Safety Report 5133940-9 (Version None)
Quarter: 2006Q4

REPORT INFORMATION
  Report Type: 
  Country: None (occurrence: None)
  Receive Date: 20061023
  Receipt Date: 20061023
  Transmission Date: 20070319
  Serious: Yes (Other)
  Sender: FDA-Public Use
  Company Number: None

PATIENT
  Age: 63 Year
  Sex: Male
  Weight: 79.8331 kg

DRUGS (1)
  1. SODIUM BICARBONATE [Suspect]
     Dosage: 650 MB   TWICE A DAY  PO
     Route: 048
     Dates: start: 20060914, end: 20060919

REACTIONS (3)
  - CONSTIPATION [None]
  - OEDEMA PERIPHERAL [None]
  - STOMACH DISCOMFORT [None]
